FAERS Safety Report 18501520 (Version 5)
Quarter: 2021Q1

REPORT INFORMATION
  Report Type: Spontaneous
  Country: US (occurrence: US)
  Receive Date: 20201113
  Receipt Date: 20210129
  Transmission Date: 20210419
  Serious: No
  Sender: FDA-Public Use
  Company Number: US-PFIZER INC-2020445311

PATIENT
  Age: 17 Year
  Sex: Male
  Weight: 91.63 kg

DRUGS (2)
  1. ACTEMRA [Concomitant]
     Active Substance: TOCILIZUMAB
     Indication: ANKYLOSING SPONDYLITIS
     Dosage: UNK
  2. GENOTROPIN [Suspect]
     Active Substance: SOMATROPIN
     Indication: GROWTH HORMONE DEFICIENCY
     Dosage: 2.8 MG, DAILY
     Dates: start: 20180816

REACTIONS (8)
  - Incorrect dose administered by device [Unknown]
  - Device malfunction [Unknown]
  - Expired device used [Unknown]
  - Device power source issue [Unknown]
  - Device occlusion [Unknown]
  - Poor quality device used [Unknown]
  - Drug dose omission by device [Unknown]
  - Injection site discomfort [Unknown]
